FAERS Safety Report 10570185 (Version 2)
Quarter: 2014Q4

REPORT INFORMATION
  Report Type: Spontaneous
  Country: GB (occurrence: None)
  Receive Date: 20141105
  Receipt Date: 20141202
  Transmission Date: 20150529
  Serious: Yes (Life-Threatening)
  Sender: FDA-Public Use
  Company Number: CL-588-2014

PATIENT
  Age: 54 Year
  Sex: Male
  Weight: 93.9 kg

DRUGS (5)
  1. LEVOFLOXACIN. [Suspect]
     Active Substance: LEVOFLOXACIN
     Indication: LEGIONELLA INFECTION
     Route: 042
     Dates: start: 20141007, end: 20141016
  2. PROPOFOL. [Concomitant]
     Active Substance: PROPOFOL
  3. RFAMPICIN [Concomitant]
  4. ALFENTANIL [Concomitant]
     Active Substance: ALFENTANIL
  5. CHLORHEXIDINE GLUCONATE. [Concomitant]
     Active Substance: CHLORHEXIDINE GLUCONATE

REACTIONS (1)
  - Pulseless electrical activity [None]

NARRATIVE: CASE EVENT DATE: 20141016
